FAERS Safety Report 6389049-X (Version None)
Quarter: 2009Q4

REPORT INFORMATION
  Report Type: 
  Country: None (occurrence: None)
  Receive Date: 20091001
  Receipt Date: 20090925
  Transmission Date: 20100525
  Serious: Yes (Other)
  Sender: FDA-Public Use
  Company Number: 2008US000685

PATIENT
  Age: 39 Year
  Sex: Male
  Weight: 61.2 kg

DRUGS (2)
  1. PROTOPIC [Suspect]
     Indication: ECZEMA
     Dosage: 0.03 %, BID, TOPICAL
     Route: 061
     Dates: start: 20011113, end: 20040101
  2. PIMECROLIMUS (PIMECROLIMUS, PIMECROLIMUS) [Concomitant]

REACTIONS (3)
  - BONE MARROW TRANSPLANT [None]
  - MELANOCYTIC NAEVUS [None]
  - NON-HODGKIN'S LYMPHOMA STAGE IV [None]
